FAERS Safety Report 5346912-6 (Version None)
Quarter: 2007Q2

REPORT INFORMATION
  Report Type: 
  Country: None (occurrence: None)
  Receive Date: 20070426
  Receipt Date: 20060327
  Transmission Date: 20071010
  Serious: Yes (Disabling, Other)
  Sender: FDA-Public Use
  Company Number: 2006-03-1699

PATIENT
  Age: 83 Year
  Sex: Female
  Weight: 61.2356 kg

DRUGS (6)
  1. CELESTONE SOLUSPAN [Suspect]
     Indication: PIRIFORMIS SYNDROME
     Dosage: IM
     Route: 030
     Dates: end: 20060215
  2. MARCAINE [Suspect]
     Indication: ARTHRALGIA
     Dates: start: 20060215
  3. HYDROCHLOROTHIAZIDE [Concomitant]
  4. VALIUM [Concomitant]
  5. PENICILLIN [Concomitant]
  6. KENALOG-40 [Concomitant]

REACTIONS (18)
  - ASTHENIA [None]
  - BLOOD GLUCOSE INCREASED [None]
  - CONVULSION [None]
  - DECREASED ACTIVITY [None]
  - DIZZINESS [None]
  - HEADACHE [None]
  - HYPERTENSION [None]
  - HYPOTENSION [None]
  - MALAISE [None]
  - MUSCULOSKELETAL STIFFNESS [None]
  - NERVOUSNESS [None]
  - PAIN [None]
  - PANIC ATTACK [None]
  - PHARYNGOLARYNGEAL PAIN [None]
  - SOMNOLENCE [None]
  - THROAT IRRITATION [None]
  - TREMOR [None]
  - UNEVALUABLE EVENT [None]
